FAERS Safety Report 8639176 (Version 3)
Quarter: 2013Q1

REPORT INFORMATION
  Report Type: Spontaneous
  Country: US (occurrence: None)
  Receive Date: 20120618
  Receipt Date: 20121204
  Transmission Date: 20140127
  Serious: Yes (Death, Other)
  Sender: FDA-Public Use
  Company Number: 2012SGN00256

PATIENT
  Age: 18 Year
  Sex: Male

DRUGS (31)
  1. ADCETRIS [Suspect]
     Indication: ANAPLASTIC LARGE-CELL LYMPHOMA
     Route: 042
     Dates: start: 20111005, end: 20111025
  2. ALBUMIN (ALBUMIN) [Concomitant]
  3. BISACODYL (BISACODYL) [Concomitant]
  4. CEFEPIME (CEFEPIME) [Concomitant]
  5. CEFTRIAXONE (CEFTRIAXONE SODIUM) [Concomitant]
  6. DEXAMETHASONE (DEXAMETHASONE SODIUM PHOSPHATE) [Concomitant]
  7. DIPHENHYDRAMINE (DIPHENHYDRAMINE) [Concomitant]
  8. DRONABINOL [Concomitant]
  9. OTHER NUTRIENTS [Concomitant]
  10. FENTANYL (FENTANYL CITRATE) INJECTION [Concomitant]
  11. FLUCONAZOLE (FLUCONAZOLE) [Concomitant]
  12. FUROSEMIDE (FUROSEMIDE) [Concomitant]
  13. GABAPENTIN (GABAPENTIN) [Concomitant]
  14. HALOPERIDOL (HALOPERIDOL DECANOATE) [Concomitant]
  15. LACTOBACILLUS ACIDOPHILUS COMPOUND (LACTOBACILLUS ACIDOPHILUS COMPOUND) [Concomitant]
  16. LORAZEPAM (LORAZEPAM) [Concomitant]
  17. MAGNESIUM CITRATE (CITRIC ACID, MAGNESIUM CARBONATE, POTASSIUM BICARBONATE) [Concomitant]
  18. MEROPENEM (MEROPENEM) [Concomitant]
  19. METHYLNALTREXONE BROMIDE (METHYLNATREXONE BROMIDE) [Concomitant]
  20. METRONIDAZOLE (METRONIDAZOLE SODIUM) [Concomitant]
  21. MICAFUNGIN (MICAFUNGIN) [Concomitant]
  22. MORPHINE (MORPHINE HYDROCHLORIDE) [Concomitant]
  23. ONDANSETRON (ONDANSETRON) [Concomitant]
  24. PANTOPRAZOLE (PANTOPRAZOLE) [Concomitant]
  25. PREDNISONE (PREDNISONE ACETATE) [Concomitant]
  26. RANITIDINE (RANITIDINE HYDROCHLORIDE) [Concomitant]
  27. SCOPOLAMINE (HYOSCINE HYDROBROMIDE) [Concomitant]
  28. SODIUM BIPHOSPHATE (SODIUM BIPHOSPHATE) [Concomitant]
  29. BACTRIM [Concomitant]
  30. TOBRAMYCIN (TOBRAMYCIN SULFATE) [Concomitant]
  31. VANCOMYCIN (VANCOMYCIN HYDROCHLORIDE) [Concomitant]

REACTIONS (3)
  - Rectal haemorrhage [None]
  - Disease progression [None]
  - Anaplastic large-cell lymphoma [None]
